FAERS Safety Report 9989833 (Version 1)
Quarter: 2014Q1

REPORT INFORMATION
  Report Type: Report from Study
  Country: US (occurrence: US)
  Receive Date: 20140310
  Receipt Date: 20140310
  Transmission Date: 20141002
  Serious: No
  Sender: FDA-Public Use
  Company Number: US-ABBVIE-13P-163-1134282-00

PATIENT
  Age: 40 Year
  Sex: Female

DRUGS (8)
  1. ACYCLOVIR [Concomitant]
     Indication: ANTIVIRAL PROPHYLAXIS
     Dosage: 400 MG DAILY
     Route: 048
  2. UCERIS [Concomitant]
     Indication: CROHN^S DISEASE
  3. HUMIRA [Suspect]
     Indication: CROHN^S DISEASE
     Dates: start: 20130617, end: 20130617
  4. HUMIRA [Suspect]
     Dates: start: 20130701, end: 20130701
  5. HUMIRA [Suspect]
  6. LIALDA [Concomitant]
     Indication: CROHN^S DISEASE
     Route: 048
  7. SYNTHROID [Concomitant]
     Indication: HYPOTHYROIDISM
     Route: 048
  8. ORTHO NOVUM [Concomitant]
     Indication: CONTRACEPTION
     Dosage: 135 MG DAILY

REACTIONS (1)
  - Injection site pain [Recovered/Resolved]
